FAERS Safety Report 9795109 (Version 1)
Quarter: 2014Q1

REPORT INFORMATION
  Report Type: Report from Study
  Country: SK (occurrence: SK)
  Receive Date: 20140103
  Receipt Date: 20140103
  Transmission Date: 20141002
  Serious: Yes (Other)
  Sender: FDA-Public Use
  Company Number: SK-ROCHE-1328329

PATIENT
  Age: 26 Year
  Sex: Female

DRUGS (3)
  1. OMALIZUMAB [Suspect]
     Indication: ASTHMA
     Route: 058
     Dates: start: 20120313, end: 20120410
  2. SERETIDE [Concomitant]
  3. MONTELUKAST [Concomitant]

REACTIONS (1)
  - Influenza like illness [Recovered/Resolved]
